FAERS Safety Report 17852001 (Version 8)
Quarter: 2021Q4

REPORT INFORMATION
  Report Type: Spontaneous
  Country: GB (occurrence: GB)
  Receive Date: 20200602
  Receipt Date: 20211211
  Transmission Date: 20220303
  Serious: Yes (Other)
  Sender: FDA-Public Use
  Company Number: NVSC2020GB108658

PATIENT
  Age: 80 Year
  Sex: Male

DRUGS (46)
  1. ELTROMBOPAG OLAMINE [Suspect]
     Active Substance: ELTROMBOPAG OLAMINE
     Indication: Immune thrombocytopenia
     Dosage: 25 MG, QD
     Route: 065
  2. RITUXIMAB [Suspect]
     Active Substance: RITUXIMAB
     Indication: Product used for unknown indication
     Dosage: UNK
     Route: 065
     Dates: start: 20170202
  3. MYCOPHENOLATE MOFETIL [Suspect]
     Active Substance: MYCOPHENOLATE MOFETIL
     Indication: Immune thrombocytopenia
     Dosage: UNK
     Route: 065
     Dates: start: 201803
  4. ROMIPLOSTIM [Suspect]
     Active Substance: ROMIPLOSTIM
     Indication: Immune thrombocytopenia
     Dosage: UNK
     Route: 065
     Dates: start: 201810
  5. ROMIPLOSTIM [Suspect]
     Active Substance: ROMIPLOSTIM
     Indication: Immune thrombocytopenia
     Route: 065
  6. MYCOPHENOLATE MOFETIL [Suspect]
     Active Substance: MYCOPHENOLATE MOFETIL
     Indication: Immune thrombocytopenia
     Dosage: UNK
     Route: 065
     Dates: start: 201803
  7. MYCOPHENOLIC ACID [Concomitant]
     Active Substance: MYCOPHENOLIC ACID
     Indication: Immunosuppressant drug therapy
     Dosage: UNK (PAUSED TO RE COVID)
     Route: 065
  8. LATANOPROST [Concomitant]
     Active Substance: LATANOPROST
     Indication: Retinal vein occlusion
     Dosage: 1/12,/1 DRP MILLILITER, QD
     Route: 065
     Dates: start: 202107
  9. LATANOPROST [Concomitant]
     Active Substance: LATANOPROST
     Dosage: 75 MG, QD
     Route: 065
     Dates: start: 202107
  10. FOLIC ACID [Concomitant]
     Active Substance: FOLIC ACID
     Indication: Haemodialysis
     Dosage: 5 MG, QD
     Route: 065
  11. FOLIC ACID [Concomitant]
     Active Substance: FOLIC ACID
     Indication: Cold type haemolytic anaemia
     Dosage: UNK
     Route: 065
  12. FOLIC ACID [Concomitant]
     Active Substance: FOLIC ACID
     Indication: Haemolysis
     Dosage: UNK
     Route: 065
  13. LEVOTHYROXINE [Concomitant]
     Active Substance: LEVOTHYROXINE
     Indication: Hypothyroidism
     Dosage: 75 UG, QD
     Route: 065
  14. LEVOTHYROXINE [Concomitant]
     Active Substance: LEVOTHYROXINE
     Dosage: 75 MICROGRAM, QD
     Route: 065
  15. LEVOTHYROXINE [Concomitant]
     Active Substance: LEVOTHYROXINE
     Dosage: 75 MICROGRAM, QD
     Route: 065
  16. ALENDRONIC ACID [Concomitant]
     Active Substance: ALENDRONIC ACID
     Indication: Osteoporosis
     Dosage: 70 MG, QW
     Route: 065
  17. ALENDRONIC ACID [Concomitant]
     Active Substance: ALENDRONIC ACID
     Dosage: UNK
     Route: 065
  18. ALENDRONIC ACID [Concomitant]
     Active Substance: ALENDRONIC ACID
     Route: 065
  19. CAL D [Concomitant]
     Indication: Osteoporosis
     Dosage: 1000 MG, QD
     Route: 065
  20. MYCOPHENOLIC ACID [Concomitant]
     Active Substance: MYCOPHENOLIC ACID
     Indication: Immunosuppressant drug therapy
     Dosage: UNK (PAUSED TO RE COVID)
     Route: 065
  21. MYCOPHENOLIC ACID [Concomitant]
     Active Substance: MYCOPHENOLIC ACID
     Route: 065
  22. MYCOPHENOLIC ACID [Concomitant]
     Active Substance: MYCOPHENOLIC ACID
     Dosage: UNK (PAUSED TO RE COVID)
     Route: 065
  23. MYCOPHENOLIC ACID [Concomitant]
     Active Substance: MYCOPHENOLIC ACID
     Dosage: UNK (PAUSED TO RE COVID)
     Route: 065
  24. FUROSEMIDE [Concomitant]
     Active Substance: FUROSEMIDE
     Indication: Fluid retention
     Dosage: 80 MG, QD
     Route: 065
  25. FUROSEMIDE [Concomitant]
     Active Substance: FUROSEMIDE
     Dosage: UNK
     Route: 065
  26. FUROSEMIDE [Concomitant]
     Active Substance: FUROSEMIDE
     Route: 065
  27. SPIRONOLACTONE [Concomitant]
     Active Substance: SPIRONOLACTONE
     Indication: Fluid retention
     Dosage: 1.25 MG PD
     Route: 065
  28. SPIRONOLACTONE [Concomitant]
     Active Substance: SPIRONOLACTONE
     Dosage: UNK
     Route: 065
  29. SPIRONOLACTONE [Concomitant]
     Active Substance: SPIRONOLACTONE
     Dosage: UNK
     Route: 065
  30. SPIRONOLACTONE [Concomitant]
     Active Substance: SPIRONOLACTONE
     Dosage: 1.25 MILLIGRAM, QD
     Route: 065
  31. SPIRONOLACTONE [Concomitant]
     Active Substance: SPIRONOLACTONE
     Dosage: 1.25 MILLIGRAM, QD
     Route: 065
  32. ACETAMINOPHEN [Concomitant]
     Active Substance: ACETAMINOPHEN
     Indication: Musculoskeletal discomfort
     Dosage: 60 MG, PRN
     Route: 065
  33. ACETAMINOPHEN [Concomitant]
     Active Substance: ACETAMINOPHEN
     Indication: Musculoskeletal discomfort
     Route: 065
  34. ACETAMINOPHEN [Concomitant]
     Active Substance: ACETAMINOPHEN
     Dosage: 60 MILLIGRAM, AS NECESSARY
     Route: 065
  35. ACETAMINOPHEN [Concomitant]
     Active Substance: ACETAMINOPHEN
     Dosage: UNK
     Route: 065
  36. ACETAMINOPHEN [Concomitant]
     Active Substance: ACETAMINOPHEN
     Route: 065
  37. COCODAMOL [Concomitant]
     Active Substance: ACETAMINOPHEN\CODEINE PHOSPHATE
     Indication: Musculoskeletal discomfort
     Dosage: 60 MG (AS REQUIRED)
     Route: 065
  38. COCODAMOL [Concomitant]
     Active Substance: ACETAMINOPHEN\CODEINE PHOSPHATE
     Dosage: UNK
     Route: 065
  39. COCODAMOL [Concomitant]
     Active Substance: ACETAMINOPHEN\CODEINE PHOSPHATE
     Dosage: 60 MILLIGRAM, AS NECESSARY
     Route: 065
  40. COCODAMOL [Concomitant]
     Active Substance: ACETAMINOPHEN\CODEINE PHOSPHATE
     Dosage: UNK
     Route: 065
  41. COCODAMOL [Concomitant]
     Active Substance: ACETAMINOPHEN\CODEINE PHOSPHATE
     Route: 065
  42. DEXAMETHASONE [Concomitant]
     Active Substance: DEXAMETHASONE
     Indication: Product used for unknown indication
     Dosage: UNK (3 SHORTS COURSES OF HIGH DOSE)
     Route: 065
  43. CALCIUM CARBONATE [Concomitant]
     Active Substance: CALCIUM CARBONATE
     Indication: Osteoporosis
     Dosage: 1000 MILLIGRAM, QD
     Route: 065
  44. CHOLECALCIFEROL [Concomitant]
     Active Substance: CHOLECALCIFEROL
     Indication: Osteoporosis
     Dosage: 1000 MILLIGRAM, QD
     Route: 065
  45. CHOLECALCIFEROL [Concomitant]
     Active Substance: CHOLECALCIFEROL
     Route: 065
  46. CHOLECALCIFEROL [Concomitant]
     Active Substance: CHOLECALCIFEROL
     Dosage: 1000 MG, QD
     Route: 065

REACTIONS (8)
  - Internal haemorrhage [Unknown]
  - Cardiac failure [Unknown]
  - Platelet count abnormal [Unknown]
  - Platelet count decreased [Unknown]
  - Atrial fibrillation [Unknown]
  - Pneumonia [Unknown]
  - Haemoglobin decreased [Unknown]
  - Therapeutic response unexpected [Unknown]

NARRATIVE: CASE EVENT DATE: 20180101
